FAERS Safety Report 5183054-7 (Version None)
Quarter: 2006Q4

REPORT INFORMATION
  Report Type: 
  Country: None (occurrence: None)
  Receive Date: 20061220
  Receipt Date: 20051207
  Transmission Date: 20070319
  Serious: No
  Sender: FDA-Public Use
  Company Number: US-GLAXOSMITHKLINE-A0584940A

PATIENT
  Age: 67 Year
  Sex: Female

DRUGS (5)
  1. NICODERM CQ [Suspect]
  2. ADVAIR DISKUS 100/50 [Concomitant]
  3. ALBUTEROL [Concomitant]
  4. MUCINEX [Concomitant]
  5. NASONEX [Concomitant]

REACTIONS (5)
  - DROOLING [None]
  - DRY MOUTH [None]
  - DYSGEUSIA [None]
  - INSOMNIA [None]
  - RHINORRHOEA [None]
